FAERS Safety Report 9521214 (Version 1)
Quarter: 2013Q3

REPORT INFORMATION
  Report Type: Spontaneous
  Country: US (occurrence: US)
  Receive Date: 20130913
  Receipt Date: 20130913
  Transmission Date: 20140515
  Serious: Yes (Other)
  Sender: FDA-Public Use
  Company Number: US-ASTRAZENECA-2013SE68251

PATIENT
  Age: 67 Year
  Sex: Male

DRUGS (3)
  1. SEROQUEL XR [Suspect]
     Indication: BIPOLAR DISORDER
     Dosage: 200MG
     Route: 048
  2. LITHIUM [Concomitant]
     Dosage: 600MG
  3. PREVASTATIN [Concomitant]
     Dosage: 40MG

REACTIONS (1)
  - Blood cholesterol increased [Unknown]
